FAERS Safety Report 5828919-5 (Version None)
Quarter: 2008Q3

REPORT INFORMATION
  Report Type: 
  Country: None (occurrence: None)
  Receive Date: 20080731
  Receipt Date: 20080723
  Transmission Date: 20090109
  Serious: Yes (Death, Other)
  Sender: FDA-Public Use
  Company Number: US-JNJFOC-20080706027

PATIENT
  Sex: Male
  Weight: 58.97 kg

DRUGS (1)
  1. REGRANEX [Suspect]
     Indication: DIABETIC ULCER
     Route: 061
     Dates: start: 20061201, end: 20071201

REACTIONS (1)
  - PANCREATIC CARCINOMA [None]
